FAERS Safety Report 4512569-7 (Version None)
Quarter: 2004Q4

REPORT INFORMATION
  Report Type: 
  Country: None (occurrence: None)
  Receive Date: 20041008
  Receipt Date: 20040819
  Transmission Date: 20050328
  Serious: Yes (Other)
  Sender: FDA-Public Use
  Company Number: 378317

PATIENT
  Age: 39 Year
  Sex: Male
  Weight: 102.5 kg

DRUGS (1)
  1. FUZEON [Suspect]
     Indication: HIV INFECTION
     Dosage: 90 MG 2 PER DAY SUBCUTANEOUS
     Route: 058
     Dates: start: 20040508

REACTIONS (4)
  - DISCOMFORT [None]
  - ERYTHEMA [None]
  - INJECTION SITE REACTION [None]
  - SWELLING [None]
